FAERS Safety Report 14980393 (Version 3)
Quarter: 2018Q4

REPORT INFORMATION
  Report Type: Report from Study
  Country: JP (occurrence: JP)
  Receive Date: 20180606
  Receipt Date: 20181106
  Transmission Date: 20190204
  Serious: Yes (Death, Hospitalization)
  Sender: FDA-Public Use
  Company Number: JP-ASTRAZENECA-2018SE72233

PATIENT
  Age: 53 Year
  Sex: Female
  Weight: 43 kg

DRUGS (6)
  1. PRIMPERAN [Concomitant]
     Active Substance: METOCLOPRAMIDE HYDROCHLORIDE
     Dosage: DOSE UNKNOWN, AS REQUIRED
     Route: 048
     Dates: start: 20180319
  2. LYNPARZA [Suspect]
     Active Substance: OLAPARIB
     Indication: OVARIAN CANCER
     Route: 048
     Dates: start: 20180602, end: 20180611
  3. DECADRON [Concomitant]
     Active Substance: DEXAMETHASONE
     Dosage: DOSE UNKNOWN
     Dates: start: 20180319, end: 20180321
  4. LYNPARZA [Suspect]
     Active Substance: OLAPARIB
     Indication: OVARIAN CANCER
     Route: 048
     Dates: start: 20180319, end: 20180405
  5. LYNPARZA [Suspect]
     Active Substance: OLAPARIB
     Indication: OVARIAN CANCER
     Route: 048
     Dates: start: 20180501, end: 20180515
  6. KYTRIL [Concomitant]
     Active Substance: GRANISETRON HYDROCHLORIDE
     Dosage: DOSE UNKNOWN
     Dates: start: 20180319

REACTIONS (7)
  - Nausea [Recovering/Resolving]
  - Subileus [Recovered/Resolved]
  - Platelet count decreased [Recovered/Resolved]
  - Haematuria [Recovering/Resolving]
  - Disease progression [Fatal]
  - Anaemia [Recovered/Resolved]
  - Neutropenia [Recovered/Resolved]

NARRATIVE: CASE EVENT DATE: 20180320
